FAERS Safety Report 11750392 (Version 5)
Quarter: 2021Q4

REPORT INFORMATION
  Report Type: Spontaneous
  Country: FR (occurrence: FR)
  Receive Date: 20151118
  Receipt Date: 20211101
  Transmission Date: 20220303
  Serious: Yes (Life-Threatening, Hospitalization, Other)
  Sender: FDA-Public Use
  Company Number: FR-BRISTOL-MYERS SQUIBB COMPANY-BMS-2015-053880

PATIENT
  Age: 31 Year
  Sex: Female

DRUGS (32)
  1. AZTREONAM [Suspect]
     Active Substance: AZTREONAM
     Indication: Meningitis
     Dosage: UNK
     Route: 065
  2. AZTREONAM [Suspect]
     Active Substance: AZTREONAM
     Indication: Enterococcal infection
  3. AZTREONAM [Suspect]
     Active Substance: AZTREONAM
     Indication: Urinary tract infection
  4. AZTREONAM [Suspect]
     Active Substance: AZTREONAM
     Indication: Serratia infection
  5. ACETAMINOPHEN [Suspect]
     Active Substance: ACETAMINOPHEN
     Indication: Product used for unknown indication
     Dosage: UNK
     Route: 065
  6. PANTOPRAZOLE [Suspect]
     Active Substance: PANTOPRAZOLE
     Indication: Skin test
     Dosage: UNK
     Route: 065
  7. FOSFOMYCIN [Suspect]
     Active Substance: FOSFOMYCIN
     Indication: Enterococcal infection
     Dosage: UNK
     Route: 042
  8. FOSFOMYCIN [Suspect]
     Active Substance: FOSFOMYCIN
     Indication: Urinary tract infection
  9. FOSFOMYCIN [Suspect]
     Active Substance: FOSFOMYCIN
     Indication: Encephalomyelitis
  10. ENOXAPARIN SODIUM [Suspect]
     Active Substance: ENOXAPARIN SODIUM
     Indication: Product used for unknown indication
     Dosage: UNK
     Route: 065
  11. RIFAMPIN [Suspect]
     Active Substance: RIFAMPIN
     Indication: Meningitis
     Dosage: UNK
     Route: 065
  12. RIFAMPIN [Suspect]
     Active Substance: RIFAMPIN
     Indication: Enterococcal infection
  13. RIFAMPIN [Suspect]
     Active Substance: RIFAMPIN
     Indication: Urinary tract infection
  14. VANCOMYCIN [Suspect]
     Active Substance: VANCOMYCIN
     Indication: Meningitis
     Dosage: UNK
     Route: 042
  15. VANCOMYCIN [Suspect]
     Active Substance: VANCOMYCIN
     Indication: Enterococcal infection
  16. VANCOMYCIN [Suspect]
     Active Substance: VANCOMYCIN
     Indication: Urinary tract infection
  17. VANCOMYCIN [Suspect]
     Active Substance: VANCOMYCIN
     Indication: Encephalomyelitis
  18. VANCOMYCIN [Suspect]
     Active Substance: VANCOMYCIN
     Indication: Pseudomonas infection
  19. DAPTOMYCIN [Suspect]
     Active Substance: DAPTOMYCIN
     Indication: Product used for unknown indication
     Dosage: UNK
     Route: 065
  20. SULFAMETHOXAZOLE\TRIMETHOPRIM [Suspect]
     Active Substance: SULFAMETHOXAZOLE\TRIMETHOPRIM
     Indication: Pseudomonas infection
     Dosage: UNK
     Route: 065
  21. GENTAMICIN [Suspect]
     Active Substance: GENTAMICIN
     Indication: Enterococcal infection
     Dosage: UNK
     Route: 065
  22. CEFOTAXIME [Suspect]
     Active Substance: CEFOTAXIME SODIUM
     Indication: Product used for unknown indication
     Dosage: UNK
     Route: 065
  23. CIPROFLOXACIN [Suspect]
     Active Substance: CIPROFLOXACIN
     Indication: Pseudomonas infection
     Dosage: UNK
     Route: 065
  24. LINEZOLID [Suspect]
     Active Substance: LINEZOLID
     Indication: Pseudomonas infection
     Dosage: UNK
     Route: 065
  25. LINEZOLID [Suspect]
     Active Substance: LINEZOLID
     Indication: Enterococcal infection
  26. CIPROFLOXACIN HYDROCHLORIDE [Suspect]
     Active Substance: CIPROFLOXACIN HYDROCHLORIDE
     Indication: Enterococcal infection
  27. GENTAMICIN SULFATE [Suspect]
     Active Substance: GENTAMICIN SULFATE
     Indication: Pseudomonas infection
     Dosage: UNK
     Route: 065
  28. COTRIMOXAZOLE [Suspect]
     Active Substance: SULFAMETHOXAZOLE\TRIMETHOPRIM
     Indication: Enterococcal infection
     Dosage: UNK
     Route: 065
  29. CEFTRIAXONE [Concomitant]
     Active Substance: CEFTRIAXONE
     Indication: Meningitis
  30. CEFTRIAXONE [Concomitant]
     Active Substance: CEFTRIAXONE
     Indication: Enterococcal infection
  31. CEFTRIAXONE [Concomitant]
     Active Substance: CEFTRIAXONE
     Indication: Urinary tract infection
  32. CEFOTAXIME SODIUM [Concomitant]
     Active Substance: CEFOTAXIME SODIUM
     Indication: Product used for unknown indication
     Route: 065

REACTIONS (1)
  - Drug reaction with eosinophilia and systemic symptoms [Recovered/Resolved with Sequelae]
